FAERS Safety Report 23588864 (Version 1)
Quarter: 2024Q1

REPORT INFORMATION
  Report Type: Spontaneous
  Country: FR (occurrence: FR)
  Receive Date: 20240304
  Receipt Date: 20240304
  Transmission Date: 20240410
  Serious: Yes (Hospitalization)
  Sender: FDA-Public Use
  Company Number: None

PATIENT
  Age: 74 Year
  Sex: Male

DRUGS (2)
  1. KETOPROFEN [Suspect]
     Active Substance: KETOPROFEN
     Indication: Product used for unknown indication
     Dosage: TIME INTERVAL: TOTAL
     Route: 065
     Dates: start: 20240109
  2. TOPLEXIL (OXOMEMAZINE) [Suspect]
     Active Substance: OXOMEMAZINE
     Indication: Product used for unknown indication
     Dosage: TIME INTERVAL: TOTAL: 1 BOTTLE
     Route: 065
     Dates: start: 20240109

REACTIONS (4)
  - Acute kidney injury [Recovered/Resolved]
  - Coma [Recovered/Resolved]
  - Poisoning deliberate [Recovered/Resolved]
  - Hypotension [Recovered/Resolved]

NARRATIVE: CASE EVENT DATE: 20240109
